FAERS Safety Report 4510835-2 (Version None)
Quarter: 2004Q4

REPORT INFORMATION
  Report Type: 
  Country: None (occurrence: None)
  Receive Date: 20041122
  Receipt Date: 20041109
  Transmission Date: 20050328
  Serious: Yes (Hospitalization)
  Sender: FDA-Public Use
  Company Number: USA-2004-0017578

PATIENT
  Age: 6 Year
  Sex: Male

DRUGS (4)
  1. SPECTRACEF [Suspect]
     Indication: VIRAL INFECTION
     Dosage: MG, SINGLE, ORAL
     Route: 048
     Dates: start: 20041007, end: 20041007
  2. CEFZON (CEFDINIR) [Concomitant]
  3. MUCODYNE (CARBOCISTEINE) [Concomitant]
  4. PERIACTIN [Concomitant]

REACTIONS (13)
  - BLOOD CREATINE PHOSPHOKINASE INCREASED [None]
  - BLOOD LACTATE DEHYDROGENASE INCREASED [None]
  - CONVULSION [None]
  - CSF PROTEIN INCREASED [None]
  - FACE OEDEMA [None]
  - FEBRILE CONVULSION [None]
  - LYMPHOCYTE STIMULATION TEST POSITIVE [None]
  - PLATELET COUNT DECREASED [None]
  - RASH GENERALISED [None]
  - RASH PAPULAR [None]
  - UPPER RESPIRATORY TRACT INFLAMMATION [None]
  - URTICARIA [None]
  - VIRAL INFECTION [None]
